FAERS Safety Report 6088634-2 (Version None)
Quarter: 2009Q1

REPORT INFORMATION
  Report Type: 
  Country: None (occurrence: None)
  Receive Date: 20090219
  Receipt Date: 20090206
  Transmission Date: 20090719
  Serious: Yes (Hospitalization)
  Sender: FDA-Public Use
  Company Number: GXKR2009DE01519

PATIENT
  Age: 70 Year
  Sex: Female

DRUGS (7)
  1. IBUPROFEN [Suspect]
     Indication: PAIN IN EXTREMITY
     Dosage: 2 DF IF REQUIRED/ABOUT 2XWEEKLY, ORAL
     Route: 048
     Dates: start: 20080401, end: 20081010
  2. ASPIRIN [Suspect]
     Indication: THROMBOSIS PROPHYLAXIS
     Dosage: 100 MG, QD, ORAL
     Route: 048
     Dates: start: 20071001, end: 20081011
  3. VERAPAMIL (VERAPAMIL) FILM-COATED TABLET [Concomitant]
  4. TORASEMIDE (TORASEMIDE) TABLET [Concomitant]
  5. GLYBURIDE [Concomitant]
  6. DO-DIOVAN (HYDROCHLOROTHIAZIDE, VALSARTAN) FILM- COATED TABLET [Concomitant]
  7. ACTOS [Concomitant]

REACTIONS (1)
  - VARICOSE VEIN RUPTURED [None]
